FAERS Safety Report 7809595-9 (Version None)
Quarter: 2011Q4

REPORT INFORMATION
  Report Type: 
  Country: None (occurrence: None)
  Receive Date: 20111012
  Receipt Date: 20110928
  Transmission Date: 20120403
  Serious: Yes (Other)
  Sender: FDA-Public Use
  Company Number: US-BAYER-2011-093788

PATIENT
  Age: 46 Year
  Sex: Female
  Weight: 64 kg

DRUGS (3)
  1. PHENOBARBITAL TAB [Concomitant]
  2. DEPAKOTE [Concomitant]
  3. ALKA-SELTZER PLUS COLD FORMULA ORANGE ZEST [Suspect]
     Indication: NASOPHARYNGITIS
     Dosage: 2 DF, UNK
     Route: 048

REACTIONS (3)
  - SWELLING FACE [None]
  - LIP SWELLING [None]
  - HYPERSENSITIVITY [None]
